FAERS Safety Report 8584151-6 (Version None)
Quarter: 2012Q3

REPORT INFORMATION
  Report Type: 
  Country: None (occurrence: None)
  Receive Date: 20120810
  Receipt Date: 20120802
  Transmission Date: 20120928
  Serious: No
  Sender: FDA-Public Use
  Company Number: US-009507513-1203USA03199

PATIENT

DRUGS (3)
  1. PROPYLENE GLYCOL [Concomitant]
  2. MINOCYCLINE HCL [Concomitant]
  3. AZASITE [Suspect]
     Indication: DRY EYE
     Dosage: 2 DROPS, UNK
     Route: 047
     Dates: start: 20120203

REACTIONS (1)
  - PAIN [None]
